FAERS Safety Report 5857169-1 (Version None)
Quarter: 2008Q3

REPORT INFORMATION
  Report Type: 
  Country: None (occurrence: None)
  Receive Date: 20080825
  Receipt Date: 20080821
  Transmission Date: 20090109
  Serious: Yes (Death)
  Sender: FDA-Public Use
  Company Number: PHBS2008FR05352

PATIENT
  Age: 56 Year
  Sex: Male

DRUGS (3)
  1. CYCLOSPORINE [Suspect]
     Indication: ACUTE GRAFT VERSUS HOST DISEASE IN INTESTINE
  2. CORTICOSTEROIDS [Concomitant]
     Indication: GRAFT VERSUS HOST DISEASE
  3. POSACONAZOLE [Concomitant]
     Indication: PROPHYLAXIS

REACTIONS (2)
  - LUNG DISORDER [None]
  - MUCORMYCOSIS [None]
